FAERS Safety Report 10877076 (Version 1)
Quarter: 2015Q1

REPORT INFORMATION
  Report Type: Spontaneous
  Country: US (occurrence: US)
  Receive Date: 20150302
  Receipt Date: 20150302
  Transmission Date: 20150721
  Serious: No
  Sender: FDA-Public Use
  Company Number: US-009507513-1502USA007980

PATIENT
  Age: 24 Year
  Sex: Female
  Weight: 61.22 kg

DRUGS (2)
  1. NEXPLANON [Suspect]
     Active Substance: ETONOGESTREL
     Indication: CONTRACEPTION
     Dosage: 1 IMPLANT/ 3 YEARS, LEFT ARM
     Route: 059
     Dates: start: 2012
  2. MINOCYCLINE [Concomitant]
     Active Substance: MINOCYCLINE\MINOCYCLINE HYDROCHLORIDE

REACTIONS (8)
  - Device breakage [Unknown]
  - Metrorrhagia [Unknown]
  - Malaise [Unknown]
  - Nausea [Unknown]
  - Muscle spasms [Unknown]
  - Device dislocation [Unknown]
  - Menstrual disorder [Unknown]
  - Acne [Unknown]

NARRATIVE: CASE EVENT DATE: 2012
